FAERS Safety Report 9874914 (Version 1)
Quarter: 2014Q1

REPORT INFORMATION
  Report Type: Other
  Country: US (occurrence: US)
  Receive Date: 20140206
  Receipt Date: 20140206
  Transmission Date: 20141002
  Serious: No
  Sender: FDA-Public Use
  Company Number: US-ACORDA-ACO_35973_2013

PATIENT
  Age: 56 Year
  Sex: Female
  Weight: 58.5 kg

DRUGS (2)
  1. AMPYRA [Suspect]
     Indication: MULTIPLE SCLEROSIS
     Dosage: 10 MG, BID
     Route: 065
     Dates: start: 2010
  2. AMPYRA [Suspect]
     Indication: GAIT DISTURBANCE

REACTIONS (1)
  - Drug ineffective [Unknown]
